FAERS Safety Report 8002232-2 (Version None)
Quarter: 2011Q4

REPORT INFORMATION
  Report Type: 
  Country: None (occurrence: None)
  Receive Date: 20111222
  Receipt Date: 20110105
  Transmission Date: 20120403
  Serious: No
  Sender: FDA-Public Use
  Company Number: US-GLAXOSMITHKLINE-A0903296A

PATIENT
  Age: 54 Year
  Sex: Female

DRUGS (3)
  1. NICODERM CQ [Suspect]
     Dosage: 1PAT PER DAY
     Route: 062
     Dates: start: 20110103
  2. NICORETTE [Suspect]
     Indication: EX-TOBACCO USER
  3. NICOTINE POLACRILEX [Suspect]
     Indication: EX-TOBACCO USER
     Dates: start: 20110103, end: 20110103

REACTIONS (3)
  - DYSPEPSIA [None]
  - OESOPHAGEAL PAIN [None]
  - EXPIRED DRUG ADMINISTERED [None]
